FAERS Safety Report 26034266 (Version 2)
Quarter: 2025Q4

REPORT INFORMATION
  Report Type: Spontaneous
  Country: EU (occurrence: EU)
  Receive Date: 20251112
  Receipt Date: 20251121
  Transmission Date: 20260118
  Serious: Yes (Other)
  Sender: AUROBINDO
  Company Number: EU-SANDOZ-SDZ2025RO078423

PATIENT
  Age: 38 Year
  Sex: Female

DRUGS (1)
  1. AZACITIDINE [Suspect]
     Active Substance: AZACITIDINE
     Indication: Acute myeloid leukaemia
     Dosage: 5 CYCLES
     Route: 065

REACTIONS (3)
  - Leukocytosis [Unknown]
  - Premature delivery [Unknown]
  - Exposure during pregnancy [Unknown]
